FAERS Safety Report 7721260-5 (Version None)
Quarter: 2011Q3

REPORT INFORMATION
  Report Type: 
  Country: None (occurrence: None)
  Receive Date: 20110831
  Receipt Date: 20110824
  Transmission Date: 20111222
  Serious: Yes (Hospitalization)
  Sender: FDA-Public Use
  Company Number: AU-SHIRE-ALL1-2011-02904

PATIENT
  Sex: Male
  Weight: 68 kg

DRUGS (1)
  1. REPLAGAL [Suspect]
     Indication: FABRY'S DISEASE
     Dosage: 14 MG, 1X/2WKS
     Route: 041
     Dates: start: 20010130

REACTIONS (4)
  - BLOOD COUNT ABNORMAL [None]
  - INCONTINENCE [None]
  - URETHRAL NEOPLASM [None]
  - URETHRAL STRICTURE POSTOPERATIVE [None]
